FAERS Safety Report 7249249 (Version 2)
Quarter: 2014Q2

REPORT INFORMATION
  Report Type: Spontaneous
  Country: FR (occurrence: None)
  Receive Date: 20091231
  Receipt Date: 20140415
  Transmission Date: 20141212
  Serious: Yes (Hospitalization, Other)
  Sender: FDA-Public Use
  Company Number: AUR-APL-2009-01619

PATIENT
  Age: 70 Year
  Sex: Female

DRUGS (2)
  1. LAMOTRIGINE (LAMOTRIGINE) [Suspect]
     Indication: EPILEPSY
     Dosage: 50MG, DAILY
  2. PHENOBARBITAL [Suspect]
     Indication: EPILEPSY
     Dosage: 200MG, DAILY

REACTIONS (11)
  - Hyperthermia [None]
  - Confusional state [None]
  - C-reactive protein increased [None]
  - Thrombocytopenia [None]
  - Lymphopenia [None]
  - Electroencephalogram abnormal [None]
  - Rash [None]
  - Enanthema [None]
  - Pancreatitis [None]
  - Hepatitis [None]
  - Drug reaction with eosinophilia and systemic symptoms [None]
